FAERS Safety Report 25164297 (Version 2)
Quarter: 2025Q2

REPORT INFORMATION
  Report Type: Report from Study
  Country: TW (occurrence: TW)
  Receive Date: 20250405
  Receipt Date: 20250517
  Transmission Date: 20250716
  Serious: Yes (Death)
  Sender: AMGEN
  Company Number: TW-AMGEN-TWNNI2025064782

PATIENT
  Sex: Male

DRUGS (1)
  1. TARLATAMAB [Suspect]
     Active Substance: TARLATAMAB
     Indication: Small cell lung cancer
     Route: 065

REACTIONS (2)
  - Death [Fatal]
  - Disease progression [Unknown]
